FAERS Safety Report 10252631 (Version 1)
Quarter: 2014Q2

REPORT INFORMATION
  Report Type: Spontaneous
  Country: CA (occurrence: CA)
  Receive Date: 20140623
  Receipt Date: 20140623
  Transmission Date: 20141212
  Serious: Yes (Congenital Anomaly)
  Sender: FDA-Public Use
  Company Number: CA-PFIZER INC-2014168586

PATIENT
  Age: 2 Year
  Sex: Male
  Weight: 16.8 kg

DRUGS (1)
  1. CHAMPIX [Suspect]
     Indication: SMOKING CESSATION THERAPY
     Dosage: UNK
     Route: 050
     Dates: start: 201010

REACTIONS (3)
  - Exposure via father [Unknown]
  - Attention deficit/hyperactivity disorder [Not Recovered/Not Resolved]
  - Speech disorder developmental [Unknown]
